FAERS Safety Report 4446143-8 (Version None)
Quarter: 2004Q3

REPORT INFORMATION
  Report Type: 
  Country: None (occurrence: None)
  Receive Date: 20040907
  Receipt Date: 20040825
  Transmission Date: 20050211
  Serious: Yes (Hospitalization)
  Sender: FDA-Public Use
  Company Number: 2003170418US

PATIENT
  Age: 58 Year
  Sex: Female
  Weight: 83.4 kg

DRUGS (2)
  1. ROGAINE [Suspect]
     Indication: FEMALE PATTERN BALDNESS
     Dosage: 1 ML, BID, TOPICAL
     Route: 061
     Dates: start: 20030701, end: 20030701
  2. LOVASTATIN [Concomitant]

REACTIONS (14)
  - ABSCESS NECK [None]
  - ALOPECIA [None]
  - APPLICATION SITE DERMATITIS [None]
  - BLOOD POTASSIUM INCREASED [None]
  - BUNDLE BRANCH BLOCK RIGHT [None]
  - CONJUNCTIVITIS [None]
  - DECREASED APPETITE [None]
  - EYE SWELLING [None]
  - HYPERSENSITIVITY [None]
  - LYMPHADENOPATHY [None]
  - RESPIRATORY RATE INCREASED [None]
  - SKIN IRRITATION [None]
  - STAPHYLOCOCCAL ABSCESS [None]
  - VISUAL ACUITY REDUCED [None]
